FAERS Safety Report 7009590-6 (Version None)
Quarter: 2010Q3

REPORT INFORMATION
  Report Type: 
  Country: None (occurrence: None)
  Receive Date: 20100923
  Receipt Date: 20100913
  Transmission Date: 20110219
  Serious: Yes (Other)
  Sender: FDA-Public Use
  Company Number: US-PFIZER INC-2010116050

PATIENT
  Sex: Female
  Weight: 64 kg

DRUGS (1)
  1. XALATAN [Suspect]
     Indication: INTRAOCULAR PRESSURE TEST ABNORMAL
     Dosage: UNK, ONCE DAILY IN EVENING FOR BOTH EYES
     Route: 047
     Dates: start: 20080101

REACTIONS (3)
  - CATARACT [None]
  - EYE IRRITATION [None]
  - INCORRECT PRODUCT STORAGE [None]
